FAERS Safety Report 7781830-5 (Version None)
Quarter: 2011Q3

REPORT INFORMATION
  Report Type: 
  Country: None (occurrence: None)
  Receive Date: 20110927
  Receipt Date: 20110923
  Transmission Date: 20111222
  Serious: Yes (Hospitalization)
  Sender: FDA-Public Use
  Company Number: US-BRISTOL-MYERS SQUIBB COMPANY-16092777

PATIENT
  Age: 61 Year
  Sex: Female
  Weight: 90 kg

DRUGS (5)
  1. STARLIX [Suspect]
  2. ACTOS [Suspect]
     Indication: DIABETES MELLITUS
     Dates: end: 20110301
  3. GLIMEPIRIDE [Suspect]
  4. METFORMIN HCL [Suspect]
  5. JANUVIA [Suspect]

REACTIONS (3)
  - BLOOD GLUCOSE INCREASED [None]
  - OEDEMA PERIPHERAL [None]
  - RENAL INJURY [None]
